FAERS Safety Report 6572467-4 (Version None)
Quarter: 2010Q1

REPORT INFORMATION
  Report Type: 
  Country: None (occurrence: None)
  Receive Date: 20100205
  Receipt Date: 20100129
  Transmission Date: 20100710
  Serious: Yes (Other)
  Sender: FDA-Public Use
  Company Number: US-MERCK-0909USA00975

PATIENT
  Age: 64 Year
  Sex: Female

DRUGS (8)
  1. JANUVIA [Suspect]
     Route: 048
  2. CORICIDIN HBP CHEST CONGESTION AND COUGH [Suspect]
     Indication: COUGH
     Route: 048
     Dates: start: 20090815, end: 20090815
  3. CORICIDIN HBP CHEST CONGESTION AND COUGH [Suspect]
     Indication: PYREXIA
     Route: 048
     Dates: start: 20090815, end: 20090815
  4. FENTANYL [Suspect]
     Route: 065
  5. VICODIN [Suspect]
     Route: 065
  6. HYZAAR [Concomitant]
     Route: 048
  7. ZOCOR [Concomitant]
     Route: 048
  8. LOPRESSOR [Concomitant]
     Route: 065

REACTIONS (7)
  - DISORIENTATION [None]
  - DRUG INTERACTION [None]
  - EXPIRED DRUG ADMINISTERED [None]
  - EYE ROLLING [None]
  - LOSS OF CONSCIOUSNESS [None]
  - MEMORY IMPAIRMENT [None]
  - SOMNOLENCE [None]
